FAERS Safety Report 21520587 (Version 1)
Quarter: 2022Q4

REPORT INFORMATION
  Report Type: Spontaneous
  Country: US (occurrence: US)
  Receive Date: 20221028
  Receipt Date: 20221028
  Transmission Date: 20230113
  Serious: Yes (Other)
  Sender: FDA-Public Use
  Company Number: US-GLAXOSMITHKLINE-US2022AMR155351

PATIENT

DRUGS (1)
  1. ALBUTEROL SULFATE [Suspect]
     Active Substance: ALBUTEROL SULFATE
     Indication: Product used for unknown indication
     Dosage: UNKN 90 MCG, 18G/200 METERED

REACTIONS (4)
  - Choking [Unknown]
  - Cough [Unknown]
  - Adverse drug reaction [Unknown]
  - Product dose omission issue [Unknown]
